FAERS Safety Report 8777330 (Version 2)
Quarter: 2012Q4

REPORT INFORMATION
  Report Type: 
  Country: US (occurrence: US)
  Receive Date: 20120911
  Receipt Date: 20121018
  Transmission Date: 20130627
  Serious: No
  Sender: FDA-Public Use
  Company Number: US-PFIZER INC-2012220511

PATIENT
  Age: 64 Year
  Sex: Female
  Weight: 102 kg

DRUGS (6)
  1. CELEBREX [Suspect]
     Indication: ARTHRITIS
     Dosage: 200 mg, 1x/day
     Route: 048
  2. WELLBUTRIN [Concomitant]
     Dosage: 150 mg, 2x/day
  3. CLONAZEPAM [Concomitant]
     Dosage: 1 mg, 3x/day
  4. HYDROCHLOROTHIAZIDE [Concomitant]
     Dosage: 25 mg, UNK
  5. IMITREX [Concomitant]
     Dosage: 100 mg, as needed
  6. LOVASTATIN [Concomitant]
     Dosage: 20 mg, 1x/day

REACTIONS (1)
  - No adverse event [Unknown]
